FAERS Safety Report 24273208 (Version 2)
Quarter: 2024Q3

REPORT INFORMATION
  Report Type: Report from Study
  Country: CO (occurrence: CO)
  Receive Date: 20240902
  Receipt Date: 20240916
  Transmission Date: 20241016
  Serious: Yes (Other)
  Sender: UCB
  Company Number: CO-UCBSA-2024044320

PATIENT
  Age: 43 Year
  Sex: Female
  Weight: 79 kg

DRUGS (4)
  1. CERTOLIZUMAB PEGOL [Suspect]
     Active Substance: CERTOLIZUMAB PEGOL
     Indication: Ankylosing spondylitis
     Dosage: 400 MILLIGRAM, EV 15 DAYS
     Route: 058
     Dates: start: 20220808, end: 20220822
  2. CERTOLIZUMAB PEGOL [Suspect]
     Active Substance: CERTOLIZUMAB PEGOL
     Dosage: 400 MILLIGRAM, EV 30 DAYS
     Route: 058
     Dates: start: 20220905, end: 20240706
  3. METHOTREXATE [Concomitant]
     Active Substance: METHOTREXATE
     Indication: Ankylosing spondylitis
     Dosage: UNK
     Dates: start: 201701, end: 202301
  4. ETORICOXIB [Concomitant]
     Active Substance: ETORICOXIB
     Indication: Ankylosing spondylitis
     Dosage: UNK
     Dates: start: 202302

REACTIONS (4)
  - Endometriosis [Recovered/Resolved]
  - Neoplasm [Recovered/Resolved]
  - Ovarian cystectomy [Not Recovered/Not Resolved]
  - Oophorectomy [Not Recovered/Not Resolved]

NARRATIVE: CASE EVENT DATE: 20240123
